FAERS Safety Report 16553214 (Version 2)
Quarter: 2020Q1

REPORT INFORMATION
  Report Type: Report from Study
  Country: IT (occurrence: IT)
  Receive Date: 20190710
  Receipt Date: 20200214
  Transmission Date: 20200409
  Serious: Yes (Death, Hospitalization, Other)
  Sender: FDA-Public Use
  Company Number: IT-INCYTE CORPORATION-2018IN011833

PATIENT

DRUGS (3)
  1. JAKAVI [Suspect]
     Active Substance: RUXOLITINIB
     Indication: PRIMARY MYELOFIBROSIS
     Dosage: 30 OT
     Route: 048
     Dates: start: 20180608, end: 20190117
  2. JAKAVI [Suspect]
     Active Substance: RUXOLITINIB
     Dosage: 15 OT
     Route: 048
     Dates: start: 20190219, end: 20190304
  3. JAKAVI [Suspect]
     Active Substance: RUXOLITINIB
     Dosage: 10 OT
     Route: 048
     Dates: start: 20190305

REACTIONS (23)
  - C-reactive protein increased [Unknown]
  - Oesophageal candidiasis [Unknown]
  - Blood glucose increased [Unknown]
  - Erythema [Unknown]
  - White blood cell count decreased [Unknown]
  - Blood creatinine increased [Unknown]
  - Oedema [Unknown]
  - Mean cell volume increased [Unknown]
  - Monocyte count increased [Unknown]
  - Pyrexia [Unknown]
  - Skin lesion [Unknown]
  - Pruritus [Unknown]
  - Lymphocyte count decreased [Unknown]
  - Thrombocytopenia [Unknown]
  - Brain natriuretic peptide increased [Unknown]
  - Ecchymosis [Unknown]
  - Pyrexia [Fatal]
  - Platelet count decreased [Unknown]
  - Anaemia [Unknown]
  - Septic shock [Fatal]
  - Fall [Unknown]
  - Neutrophil count decreased [Unknown]
  - Vomiting [Fatal]

NARRATIVE: CASE EVENT DATE: 20180705
